FAERS Safety Report 10412447 (Version 7)
Quarter: 2015Q3

REPORT INFORMATION
  Report Type: Spontaneous
  Country: US (occurrence: None)
  Receive Date: 20140820
  Receipt Date: 20150824
  Transmission Date: 20151125
  Serious: Yes (Life-Threatening, Hospitalization, Other)
  Sender: FDA-Public Use
  Company Number: ADR-2014-01457

PATIENT
  Age: 34 Year
  Sex: Female

DRUGS (2)
  1. LIORESAL [Suspect]
     Active Substance: BACLOFEN
     Indication: MUSCLE SPASTICITY
  2. BACLOFEN INTRATHECAL [Suspect]
     Active Substance: BACLOFEN

REACTIONS (15)
  - Seizure [None]
  - Drug withdrawal syndrome [None]
  - Therapeutic response increased [None]
  - Post procedural complication [None]
  - Clonus [None]
  - Therapeutic response decreased [None]
  - Muscle spasticity [None]
  - Hyperacusis [None]
  - Underdose [None]
  - Device connection issue [None]
  - Overdose [None]
  - Pruritus [None]
  - Drug hypersensitivity [None]
  - Device kink [None]
  - Condition aggravated [None]
